FAERS Safety Report 25422905 (Version 4)
Quarter: 2025Q3

REPORT INFORMATION
  Report Type: Spontaneous
  Country: JP (occurrence: JP)
  Receive Date: 20250611
  Receipt Date: 20250829
  Transmission Date: 20251020
  Serious: Yes (Other)
  Sender: EISAI
  Company Number: JP-Eisai-202502948_LEN_P_1

PATIENT
  Age: 69 Year
  Sex: Female

DRUGS (4)
  1. LENVIMA [Suspect]
     Active Substance: LENVATINIB
     Indication: Poorly differentiated thyroid carcinoma
     Route: 048
     Dates: start: 20230419
  2. LENVIMA [Suspect]
     Active Substance: LENVATINIB
     Route: 048
  3. YERVOY [Concomitant]
     Active Substance: IPILIMUMAB
     Indication: Thyroid cancer
  4. OPDIVO [Concomitant]
     Active Substance: NIVOLUMAB
     Indication: Thyroid cancer

REACTIONS (2)
  - Interstitial lung disease [Recovering/Resolving]
  - Nasopharyngitis [Unknown]

NARRATIVE: CASE EVENT DATE: 20250201
